FAERS Safety Report 7803307-0 (Version None)
Quarter: 2011Q4

REPORT INFORMATION
  Report Type: 
  Country: None (occurrence: None)
  Receive Date: 20111007
  Receipt Date: 20111004
  Transmission Date: 20120403
  Serious: Yes (Death)
  Sender: FDA-Public Use
  Company Number: JP-ELI_LILLY_AND_COMPANY-JP201108008649

PATIENT
  Sex: Female
  Weight: 75 kg

DRUGS (7)
  1. ALPRAZOLAM [Concomitant]
     Indication: MAJOR DEPRESSION
     Dosage: UNK
     Dates: end: 20110802
  2. DECADRON [Concomitant]
     Indication: FATIGUE
     Dosage: UNK
     Dates: start: 20110726, end: 20110802
  3. DULOXETINE HYDROCHLORIDE [Suspect]
     Indication: MAJOR DEPRESSION
     Dosage: 20 MG, QD
     Route: 048
     Dates: start: 20110720, end: 20110801
  4. MAGNESIUM SULFATE [Concomitant]
     Indication: CONSTIPATION
     Dosage: UNK
     Dates: end: 20110802
  5. LOBU [Concomitant]
     Dosage: UNK
     Dates: end: 20110802
  6. SELBEX [Concomitant]
     Indication: GASTRIC ULCER
     Dosage: UNK
     Dates: end: 20110802
  7. FAMOTIDINE [Concomitant]
     Indication: GASTRIC ULCER
     Dosage: UNK
     Dates: start: 20110726, end: 20110802

REACTIONS (2)
  - RENAL FAILURE [None]
  - HEPATIC FUNCTION ABNORMAL [None]
